FAERS Safety Report 10922607 (Version 1)
Quarter: 2015Q1

REPORT INFORMATION
  Report Type: Spontaneous
  Country: US (occurrence: None)
  Receive Date: 20150313
  Receipt Date: 20150313
  Transmission Date: 20150721
  Serious: Yes (Death)
  Sender: FDA-Public Use
  Company Number: US-H14001-15-00378

PATIENT

DRUGS (3)
  1. CEFTRIAXONE (CEFTRIAXONE) (UNKNOWN) (CEFTRIAXONE) [Suspect]
     Active Substance: CEFTRIAXONE
     Indication: BACTERAEMIA
  2. FENRETINIDE (FENRETINIDE) [Suspect]
     Active Substance: FENRETINIDE
     Indication: PRODUCT USED FOR UNKNOWN INDICATION
     Route: 041
  3. ACETAMINOPHEN (PARACETAMOL) (UNKNOWN) (PARACETAMOL) [Suspect]
     Active Substance: ACETAMINOPHEN
     Indication: PYREXIA

REACTIONS (10)
  - Hepatic necrosis [None]
  - Cardiotoxicity [None]
  - Haematotoxicity [None]
  - Haemorrhage [None]
  - Cholestasis [None]
  - General physical health deterioration [None]
  - Acute hepatic failure [None]
  - Nephropathy toxic [None]
  - Hepatotoxicity [None]
  - Toxicity to various agents [None]
